FAERS Safety Report 7517544-6 (Version None)
Quarter: 2011Q2

REPORT INFORMATION
  Report Type: 
  Country: None (occurrence: None)
  Receive Date: 20110601
  Receipt Date: 20110518
  Transmission Date: 20111010
  Serious: No
  Sender: FDA-Public Use
  Company Number: US-ELI_LILLY_AND_COMPANY-US201104000706

PATIENT
  Sex: Female
  Weight: 68.027 kg

DRUGS (1)
  1. FORTEO [Suspect]
     Dosage: UNK, QD
     Route: 058
     Dates: start: 20110117

REACTIONS (1)
  - NO ADVERSE EVENT [None]
